FAERS Safety Report 9966725 (Version 1)
Quarter: 2014Q1

REPORT INFORMATION
  Report Type: Report from Study
  Country: US (occurrence: US)
  Receive Date: 20140305
  Receipt Date: 20140305
  Transmission Date: 20141002
  Serious: No
  Sender: FDA-Public Use
  Company Number: US-ABBVIE-13P-163-1122696-00

PATIENT
  Age: 55 Year
  Sex: Female
  Weight: 68.1 kg

DRUGS (9)
  1. HUMIRA [Suspect]
     Indication: RHEUMATOID ARTHRITIS
     Dates: start: 201212
  2. PREDNISONE [Concomitant]
     Indication: RHEUMATOID ARTHRITIS
  3. LIPITOR [Concomitant]
     Indication: BLOOD CHOLESTEROL INCREASED
  4. VITAMIN B [Concomitant]
     Indication: SUPPLEMENTATION THERAPY
  5. OMEGA 3 [Concomitant]
     Indication: SUPPLEMENTATION THERAPY
  6. CALCIUM [Concomitant]
     Indication: SUPPLEMENTATION THERAPY
  7. ZINC [Concomitant]
     Indication: SUPPLEMENTATION THERAPY
  8. ASPIRIN [Concomitant]
     Indication: CARDIOVASCULAR EVENT PROPHYLAXIS
  9. CLARITIN [Concomitant]
     Indication: HYPERSENSITIVITY

REACTIONS (10)
  - Fatigue [Not Recovered/Not Resolved]
  - Rash [Not Recovered/Not Resolved]
  - Drug effect incomplete [Not Recovered/Not Resolved]
  - Musculoskeletal stiffness [Not Recovered/Not Resolved]
  - Injection site bruising [Unknown]
  - Sinusitis [Recovered/Resolved]
  - Sinusitis [Recovered/Resolved]
  - Local swelling [Not Recovered/Not Resolved]
  - Unevaluable event [Not Recovered/Not Resolved]
  - Rash [Recovering/Resolving]
